FAERS Safety Report 4797448-2 (Version None)
Quarter: 2005Q4

REPORT INFORMATION
  Report Type: 
  Country: None (occurrence: None)
  Receive Date: 20051006
  Receipt Date: 20051006
  Transmission Date: 20060501
  Serious: Yes (Life-Threatening)
  Sender: FDA-Public Use
  Company Number: None

PATIENT
  Age: 50 Year
  Sex: Female
  Weight: 70 kg

DRUGS (4)
  1. ACETAMINOPHEN [Suspect]
     Indication: PAIN
     Dosage: 4+ GRAMS PO Q 2-4 H
     Route: 048
     Dates: start: 20040501, end: 20040608
  2. HEPARIN [Concomitant]
  3. GABAPENTIN [Concomitant]
  4. SENNA [Concomitant]

REACTIONS (4)
  - ABDOMINAL PAIN UPPER [None]
  - ALANINE AMINOTRANSFERASE INCREASED [None]
  - ANALGESIC DRUG LEVEL INCREASED [None]
  - ASPARTATE AMINOTRANSFERASE INCREASED [None]
